FAERS Safety Report 25168268 (Version 1)
Quarter: 2025Q2

REPORT INFORMATION
  Report Type: Spontaneous
  Country: US (occurrence: US)
  Receive Date: 20250407
  Receipt Date: 20250407
  Transmission Date: 20250717
  Serious: Yes (Life-Threatening, Hospitalization)
  Sender: MYLAN
  Company Number: US-MYLANLABS-2025M1030061

PATIENT
  Age: 60 Year
  Sex: Male

DRUGS (16)
  1. AMLODIPINE [Suspect]
     Active Substance: AMLODIPINE BESYLATE
     Indication: Product used for unknown indication
  2. AMLODIPINE [Suspect]
     Active Substance: AMLODIPINE BESYLATE
     Route: 065
  3. AMLODIPINE [Suspect]
     Active Substance: AMLODIPINE BESYLATE
     Route: 065
  4. AMLODIPINE [Suspect]
     Active Substance: AMLODIPINE BESYLATE
  5. NOREPINEPHRINE [Suspect]
     Active Substance: NOREPINEPHRINE
     Indication: Hypotension
     Dosage: 2 MICROGRAM/KILOGRAM, QMINUTE
  6. NOREPINEPHRINE [Suspect]
     Active Substance: NOREPINEPHRINE
     Dosage: 2 MICROGRAM/KILOGRAM, QMINUTE
     Route: 065
  7. NOREPINEPHRINE [Suspect]
     Active Substance: NOREPINEPHRINE
     Dosage: 2 MICROGRAM/KILOGRAM, QMINUTE
     Route: 065
  8. NOREPINEPHRINE [Suspect]
     Active Substance: NOREPINEPHRINE
     Dosage: 2 MICROGRAM/KILOGRAM, QMINUTE
  9. VASOPRESSIN [Concomitant]
     Active Substance: VASOPRESSIN
     Indication: Hypotension
  10. VASOPRESSIN [Concomitant]
     Active Substance: VASOPRESSIN
     Route: 065
  11. VASOPRESSIN [Concomitant]
     Active Substance: VASOPRESSIN
     Route: 065
  12. VASOPRESSIN [Concomitant]
     Active Substance: VASOPRESSIN
  13. EPINEPHRINE [Concomitant]
     Active Substance: EPINEPHRINE
     Indication: Hypotension
  14. EPINEPHRINE [Concomitant]
     Active Substance: EPINEPHRINE
     Route: 065
  15. EPINEPHRINE [Concomitant]
     Active Substance: EPINEPHRINE
     Route: 065
  16. EPINEPHRINE [Concomitant]
     Active Substance: EPINEPHRINE

REACTIONS (5)
  - Hypotension [Unknown]
  - Intentional overdose [Unknown]
  - Drug ineffective [Unknown]
  - Nausea [Unknown]
  - Vomiting [Unknown]
